FAERS Safety Report 21922547 (Version 1)
Quarter: 2023Q1

REPORT INFORMATION
  Report Type: Spontaneous
  Country: US (occurrence: US)
  Receive Date: 20230128
  Receipt Date: 20230128
  Transmission Date: 20230417
  Serious: Yes (Other)
  Sender: FDA-Public Use
  Company Number: US-002147023-NVSC2023US015215

PATIENT
  Age: 61 Year
  Sex: Male

DRUGS (1)
  1. ZYKADIA [Suspect]
     Active Substance: CERITINIB
     Indication: Non-small cell lung cancer
     Dosage: UNK
     Route: 065

REACTIONS (4)
  - Non-small cell lung cancer [Recovering/Resolving]
  - Malignant neoplasm progression [Recovering/Resolving]
  - Metastases to central nervous system [Unknown]
  - Oedema [Unknown]

NARRATIVE: CASE EVENT DATE: 20210112
